FAERS Safety Report 7004265-1 (Version None)
Quarter: 2010Q3

REPORT INFORMATION
  Report Type: 
  Country: None (occurrence: None)
  Receive Date: 20100921
  Receipt Date: 20100914
  Transmission Date: 20110219
  Serious: Yes (Other)
  Sender: FDA-Public Use
  Company Number: US-ASTRAZENECA-2007UW24113

PATIENT
  Age: 64 Year
  Sex: Male
  Weight: 65.3 kg

DRUGS (26)
  1. SEROQUEL [Suspect]
     Indication: BIPOLAR DISORDER
     Dosage: 300-400 MG
     Route: 048
     Dates: start: 20020130, end: 20060601
  2. SEROQUEL [Suspect]
     Dosage: 200 - 300 MG
     Route: 048
     Dates: start: 20020701
  3. SEROQUEL [Suspect]
     Route: 048
     Dates: start: 20040324
  4. TRICOR [Concomitant]
     Dates: start: 20040520
  5. DIOVAN HCT [Concomitant]
     Dates: start: 20040520
  6. AVANDAMET [Concomitant]
     Dosage: 4/500 MG, TWICE DAILY
     Dates: start: 20040520
  7. HALDOL [Concomitant]
     Dates: start: 20040324
  8. HALDOL [Concomitant]
     Dosage: 2 MG DAILY, 4 MG AT BED TIME
     Dates: start: 20091021
  9. HALDOL [Concomitant]
     Dosage: 2-6 MG
     Dates: start: 19740101, end: 20090101
  10. NEURONTIN [Concomitant]
     Dates: start: 20040324
  11. NEURONTIN [Concomitant]
     Dates: start: 20061204
  12. NEURONTIN [Concomitant]
     Dates: start: 20091021
  13. BEXTRA [Concomitant]
     Dates: start: 20040324
  14. CARBAMAZEPINE [Concomitant]
     Dosage: 200 MG, 2 TABLETS TWICE A DAY
     Dates: start: 20060101
  15. TRAZODONE HCL [Concomitant]
     Dates: start: 20060101
  16. BENZTROPINE MESYLATE [Concomitant]
     Dates: start: 20060101
  17. TYLENOL [Concomitant]
     Dosage: AS REQUIRED
     Dates: start: 20060101
  18. METFORMIN [Concomitant]
     Dates: start: 20061204
  19. METFORMIN [Concomitant]
     Dates: start: 20091021
  20. ASPIRIN [Concomitant]
     Dates: start: 20091021
  21. PLAVIX [Concomitant]
     Dates: start: 20091021
  22. REQUIP [Concomitant]
     Dates: start: 20061204
  23. CYCLOBENZAPRINE [Concomitant]
     Route: 048
     Dates: start: 20081001
  24. QUINAPRIL HYDROCHLORIDE AND HYDROCHLOROTHIAZIDE [Concomitant]
     Dosage: 20 MG/ 25 MG ONE TABLET PO TWICE DAILY
     Dates: start: 20091001
  25. SIMVASTATIN [Concomitant]
     Route: 048
     Dates: start: 20091001
  26. ZYPREXA [Concomitant]
     Indication: BIPOLAR DISORDER
     Dates: start: 19990610, end: 19990624

REACTIONS (8)
  - AMNESIA [None]
  - BLOOD CHOLESTEROL INCREASED [None]
  - HYPERGLYCAEMIA [None]
  - HYPERLIPIDAEMIA [None]
  - HYPERTENSION [None]
  - NEUROPATHY PERIPHERAL [None]
  - PARKINSON'S DISEASE [None]
  - TYPE 2 DIABETES MELLITUS [None]
